FAERS Safety Report 25669528 (Version 2)
Quarter: 2025Q3

REPORT INFORMATION
  Report Type: Report from Study
  Country: US (occurrence: US)
  Receive Date: 20250812
  Receipt Date: 20250826
  Transmission Date: 20251020
  Serious: Yes (Hospitalization, Other)
  Sender: ROCHE
  Company Number: US-ROCHE-10000354245

PATIENT
  Age: 74 Year
  Sex: Male
  Weight: 63.5 kg

DRUGS (17)
  1. CELLCEPT [Suspect]
     Active Substance: MYCOPHENOLATE MOFETIL
     Indication: Renal transplant
     Route: 048
     Dates: start: 2003
  2. TYLENOL [Concomitant]
     Active Substance: ACETAMINOPHEN
  3. ASPIRIN [Concomitant]
     Active Substance: ASPIRIN
  4. LIPITOR [Concomitant]
     Active Substance: ATORVASTATIN CALCIUM
  5. DULCOLAX [Concomitant]
  6. COMBIGAN [Concomitant]
     Active Substance: BRIMONIDINE TARTRATE\TIMOLOL MALEATE
  7. TUMS [Concomitant]
     Active Substance: CALCIUM CARBONATE
  8. VITAMIN D3 [Concomitant]
     Active Substance: CHOLECALCIFEROL
  9. PLAVIX [Concomitant]
     Active Substance: CLOPIDOGREL BISULFATE
  10. COLCRYS [Concomitant]
     Active Substance: COLCHICINE
  11. SANDIMMUNE [Concomitant]
     Active Substance: CYCLOSPORINE
  12. COLACE [Concomitant]
     Active Substance: DOCUSATE SODIUM
  13. PEPCID [Concomitant]
     Active Substance: FAMOTIDINE
  14. FLONASE [Concomitant]
     Active Substance: FLUTICASONE PROPIONATE
  15. DELTASONE [Concomitant]
     Active Substance: PREDNISONE
  16. FLOMAX [Concomitant]
     Active Substance: TAMSULOSIN HYDROCHLORIDE
  17. PROTONIX [Concomitant]
     Active Substance: PANTOPRAZOLE SODIUM

REACTIONS (19)
  - Road traffic accident [Unknown]
  - Diarrhoea [Recovering/Resolving]
  - Rib fracture [Unknown]
  - Cervical vertebral fracture [Unknown]
  - Femur fracture [Unknown]
  - Weight decreased [Recovering/Resolving]
  - Decreased appetite [Recovering/Resolving]
  - Multiple injuries [Unknown]
  - Pericardial effusion [Unknown]
  - Stenosis [Unknown]
  - Acute kidney injury [Recovered/Resolved]
  - Inguinal hernia repair [Unknown]
  - Infarction [Unknown]
  - Chronic gastritis [Unknown]
  - Gastrointestinal mucosa hyperaemia [Unknown]
  - Constipation [Unknown]
  - Peripheral swelling [Unknown]
  - Chest pain [Unknown]
  - Abdominal pain upper [Unknown]

NARRATIVE: CASE EVENT DATE: 20210722
